FAERS Safety Report 4718203-5 (Version None)
Quarter: 2005Q3

REPORT INFORMATION
  Report Type: 
  Country: None (occurrence: None)
  Receive Date: 20050720
  Receipt Date: 20050713
  Transmission Date: 20060218
  Serious: Yes (Other)
  Sender: FDA-Public Use
  Company Number: PHBS2005JP10010

PATIENT
  Sex: 0

DRUGS (1)
  1. CARBAMAZEPINE [Suspect]
     Indication: BIPOLAR I DISORDER
     Route: 065

REACTIONS (1)
  - TOXIC INDUCED ENCEPHALOPATHY [None]
